FAERS Safety Report 19573937 (Version 2)
Quarter: 2021Q3

REPORT INFORMATION
  Report Type: Spontaneous
  Country: US (occurrence: US)
  Receive Date: 20210718
  Receipt Date: 20210723
  Transmission Date: 20211014
  Serious: No
  Sender: FDA-Public Use
  Company Number: US-ORGANON-O2107USA001363

PATIENT
  Age: 19 Year
  Sex: Female

DRUGS (1)
  1. NEXPLANON [Suspect]
     Active Substance: ETONOGESTREL
     Indication: CONTRACEPTION
     Dosage: 68 MG, LEFT ARM
     Route: 059
     Dates: start: 20210621

REACTIONS (4)
  - Implant site infection [Not Recovered/Not Resolved]
  - Implant site erythema [Unknown]
  - Implant site discharge [Unknown]
  - Implant site vesicles [Unknown]

NARRATIVE: CASE EVENT DATE: 2021
